FAERS Safety Report 24007643 (Version 1)
Quarter: 2024Q2

REPORT INFORMATION
  Report Type: Spontaneous
  Country: FR (occurrence: FR)
  Receive Date: 20240625
  Receipt Date: 20240625
  Transmission Date: 20240716
  Serious: Yes (Life-Threatening, Hospitalization, Other)
  Sender: FDA-Public Use
  Company Number: FR-STADA-01251030

PATIENT

DRUGS (3)
  1. LAMOTRIGINE [Suspect]
     Active Substance: LAMOTRIGINE
     Indication: Exposure during pregnancy
     Dosage: UNK (DAILY DOSES FROM THE MOTHER RANGING FROM 50 TO 400 MG)
     Route: 064
  2. LAMOTRIGINE [Suspect]
     Active Substance: LAMOTRIGINE
     Indication: Epilepsy
     Dosage: UNK (DAILY DOSES FROM THE MOTHER RANGING FROM 50 TO 400 MG)
     Route: 063
  3. LAMOTRIGINE [Suspect]
     Active Substance: LAMOTRIGINE
     Indication: Bipolar disorder

REACTIONS (10)
  - Thrombocytosis [Unknown]
  - Liver injury [Unknown]
  - Infantile apnoea [Unknown]
  - Exposure via breast milk [Unknown]
  - Neutropenia [Unknown]
  - Transaminases increased [Unknown]
  - Rash [Recovered/Resolved]
  - Hepatic enzyme increased [Recovered/Resolved]
  - Exposure during pregnancy [Unknown]
  - Accidental overdose [Unknown]
